FAERS Safety Report 6645414-4 (Version None)
Quarter: 2010Q1

REPORT INFORMATION
  Report Type: 
  Country: None (occurrence: None)
  Receive Date: 20100322
  Receipt Date: 20100311
  Transmission Date: 20100710
  Serious: Yes (Disabling)
  Sender: FDA-Public Use
  Company Number: US-BAXTER-2010BH007127

PATIENT
  Sex: Male

DRUGS (1)
  1. TIS-U-SOL [Suspect]
     Indication: OFF LABEL USE
     Route: 048
     Dates: start: 20080501, end: 20080501

REACTIONS (2)
  - FOOD INTOLERANCE [None]
  - INCORRECT ROUTE OF DRUG ADMINISTRATION [None]
